FAERS Safety Report 9435247 (Version 2)
Quarter: 2016Q2

REPORT INFORMATION
  Report Type: Spontaneous
  Country: BR (occurrence: BR)
  Receive Date: 20130801
  Receipt Date: 20160623
  Transmission Date: 20160815
  Serious: Yes (Hospitalization, Other)
  Sender: FDA-Public Use
  Company Number: BR-AMGEN-BRASP2013054035

PATIENT
  Age: 43 Year
  Sex: Female
  Weight: 48 kg

DRUGS (5)
  1. ENBREL [Suspect]
     Active Substance: ETANERCEPT
     Indication: PSORIATIC ARTHROPATHY
     Dosage: UNK
     Route: 058
     Dates: start: 2012
  2. LEFLUNOMIDE. [Concomitant]
     Active Substance: LEFLUNOMIDE
     Dosage: 1 TABLET A DAY (STRENGTH 20 MG)
  3. METHOTREXATE [Concomitant]
     Active Substance: METHOTREXATE
     Dosage: 1 ML, ONCE A WEEK (STRENGTH 50 MG)
     Route: 058
     Dates: start: 2009
  4. ARAVA [Concomitant]
     Active Substance: LEFLUNOMIDE
     Dosage: 20 MG (1 TABLET), 1X/DAY
     Dates: start: 201301
  5. ENBREL [Suspect]
     Active Substance: ETANERCEPT
     Dosage: UNK
     Route: 065
     Dates: start: 20130714

REACTIONS (10)
  - Injection site swelling [Unknown]
  - Incision site inflammation [Unknown]
  - Pain [Recovering/Resolving]
  - Menorrhagia [Unknown]
  - Uterine leiomyoma [Unknown]
  - Urinary tract infection [Unknown]
  - Injection site erythema [Unknown]
  - Vaginal discharge [Unknown]
  - Pruritus genital [Unknown]
  - Impaired healing [Unknown]

NARRATIVE: CASE EVENT DATE: 2013
